FAERS Safety Report 20408559 (Version 1)
Quarter: 2022Q1

REPORT INFORMATION
  Report Type: Report from Study
  Country: US (occurrence: US)
  Receive Date: 20220201
  Receipt Date: 20220201
  Transmission Date: 20220423
  Serious: Yes (Hospitalization)
  Sender: FDA-Public Use
  Company Number: US-NOVARTISPH-NVSC2022US017601

PATIENT
  Sex: Female

DRUGS (1)
  1. MAYZENT [Suspect]
     Active Substance: SIPONIMOD
     Indication: Multiple sclerosis
     Dosage: 2 MG/KG, QD
     Route: 048
     Dates: start: 20200410, end: 2021

REACTIONS (3)
  - Appendix disorder [Recovering/Resolving]
  - COVID-19 [Recovering/Resolving]
  - Illness [Recovering/Resolving]
